FAERS Safety Report 19885525 (Version 1)
Quarter: 2021Q3

REPORT INFORMATION
  Report Type: Spontaneous
  Country: NL (occurrence: NL)
  Receive Date: 20210927
  Receipt Date: 20210927
  Transmission Date: 20211014
  Serious: Yes (Other)
  Sender: FDA-Public Use
  Company Number: NL-GLAXOSMITHKLINE-NLCH2021066559

PATIENT
  Sex: Female

DRUGS (1)
  1. TERBINAFINE. [Suspect]
     Active Substance: TERBINAFINE
     Indication: ONYCHOMYCOSIS
     Dosage: 250 MG, QD (1 X PER DAG 1 STUK)
     Route: 065
     Dates: start: 202107, end: 20210903

REACTIONS (1)
  - Lupus-like syndrome [Not Recovered/Not Resolved]
